FAERS Safety Report 25332253 (Version 2)
Quarter: 2025Q3

REPORT INFORMATION
  Report Type: Spontaneous
  Country: US (occurrence: US)
  Receive Date: 20250519
  Receipt Date: 20250923
  Transmission Date: 20251021
  Serious: No
  Sender: KALEO, INC.
  Company Number: US-KALEO, INC.-2025KL000006

PATIENT
  Age: 18 Year
  Sex: Male

DRUGS (2)
  1. AUVI-Q [Suspect]
     Active Substance: EPINEPHRINE
  2. AUVI-Q [Suspect]
     Active Substance: EPINEPHRINE

REACTIONS (1)
  - Device audio issue [Not Recovered/Not Resolved]
